FAERS Safety Report 8127891-5 (Version None)
Quarter: 2011Q4

REPORT INFORMATION
  Report Type: 
  Country: None (occurrence: None)
  Receive Date: 20111230
  Receipt Date: 20110107
  Transmission Date: 20120403
  Serious: Yes (Hospitalization)
  Sender: FDA-Public Use
  Company Number: 261810USA

PATIENT
  Age: 30 Year
  Sex: Male

DRUGS (2)
  1. TRAMADOL HCL [Concomitant]
  2. AZITHROMYCIN [Suspect]
     Indication: TONSILLITIS
     Dosage: ORAL
     Route: 048
     Dates: start: 20101203, end: 20101205

REACTIONS (11)
  - PHARYNGEAL OEDEMA [None]
  - DIZZINESS [None]
  - ABDOMINAL PAIN UPPER [None]
  - RASH [None]
  - SWOLLEN TONGUE [None]
  - DYSPNOEA [None]
  - PRURITUS [None]
  - ABDOMINAL DISCOMFORT [None]
  - DIARRHOEA [None]
  - SWELLING FACE [None]
  - VOMITING [None]
